FAERS Safety Report 10549387 (Version 2)
Quarter: 2014Q4

REPORT INFORMATION
  Report Type: Report from Study
  Country: US (occurrence: CN)
  Receive Date: 20141028
  Receipt Date: 20141028
  Transmission Date: 20150529
  Serious: Yes (Death, Hospitalization)
  Sender: FDA-Public Use
  Company Number: CN-CELGENE-CHN-2014094621

PATIENT
  Age: 68 Year
  Sex: Male

DRUGS (6)
  1. POSACONAZOLE [Concomitant]
     Active Substance: POSACONAZOLE
     Indication: ANTI-INFECTIVE THERAPY
     Route: 048
     Dates: start: 20140521
  2. AZACITIDINE INJECTABLE [Suspect]
     Active Substance: AZACITIDINE
     Indication: MYELODYSPLASTIC SYNDROME
     Route: 058
     Dates: start: 20120829, end: 20120904
  3. POSACONAZOLE [Concomitant]
     Active Substance: POSACONAZOLE
     Route: 048
     Dates: start: 20140508
  4. AZACITIDINE INJECTABLE [Suspect]
     Active Substance: AZACITIDINE
     Route: 058
     Dates: start: 20140828, end: 20140903
  5. POSACONAZOLE [Concomitant]
     Active Substance: POSACONAZOLE
     Dosage: .4 GRAM
     Route: 065
     Dates: start: 201409
  6. MOXIFLOXACIN HYDROCHLORIDE. [Concomitant]
     Active Substance: MOXIFLOXACIN HYDROCHLORIDE
     Indication: PRODUCT USED FOR UNKNOWN INDICATION
     Route: 048
     Dates: start: 20140325

REACTIONS (1)
  - Fungal sepsis [Fatal]

NARRATIVE: CASE EVENT DATE: 20140914
